FAERS Safety Report 9200537 (Version 1)
Quarter: 2013Q1

REPORT INFORMATION
  Report Type: Spontaneous
  Country: US (occurrence: US)
  Receive Date: 20130329
  Receipt Date: 20130329
  Transmission Date: 20140127
  Serious: Yes (Death, Hospitalization)
  Sender: FDA-Public Use
  Company Number: US-PFIZER INC-HQ4978231OCT2002

PATIENT
  Age: 16 Year
  Sex: Female

DRUGS (5)
  1. ADVIL [Suspect]
     Dosage: 10 TABLETS
  2. MOTRIN [Suspect]
     Indication: COMPLETED SUICIDE
     Dosage: 2 G
     Route: 048
     Dates: start: 20011201
  3. LORATADINE [Suspect]
     Dosage: UNKNOWN
     Route: 048
  4. COLCHICINE [Suspect]
     Indication: COMPLETED SUICIDE
     Dosage: 10 MG
     Route: 048
     Dates: start: 20011201
  5. PSEUDOEPHEDRINE [Suspect]
     Indication: COMPLETED SUICIDE
     Dosage: 10 MG TABLETS
     Route: 048
     Dates: start: 20011201

REACTIONS (8)
  - Suicide attempt [Fatal]
  - Intentional overdose [Fatal]
  - Hypotension [Fatal]
  - Acidosis [Fatal]
  - Gastrointestinal haemorrhage [Fatal]
  - Renal failure [Fatal]
  - Leukopenia [Fatal]
  - Cardiac arrest [Fatal]
